FAERS Safety Report 5612101-0 (Version None)
Quarter: 2008Q1

REPORT INFORMATION
  Report Type: 
  Country: None (occurrence: None)
  Receive Date: 20080204
  Receipt Date: 20080131
  Transmission Date: 20080703
  Serious: Yes (Hospitalization)
  Sender: FDA-Public Use
  Company Number: PHNU2008DE00618

PATIENT
  Age: 73 Year
  Sex: Male

DRUGS (3)
  1. RASILEZ [Suspect]
     Dosage: UNK, UNK
     Dates: start: 20080107, end: 20080116
  2. DIURETICS [Concomitant]
  3. ACE INHIBITOR NOS [Concomitant]

REACTIONS (5)
  - APATHY [None]
  - BLOOD CREATININE INCREASED [None]
  - BLOOD UREA INCREASED [None]
  - HYPERKALAEMIA [None]
  - RENAL FAILURE [None]
